FAERS Safety Report 13462272 (Version 1)
Quarter: 2017Q2

REPORT INFORMATION
  Report Type: Spontaneous
  Country: FR (occurrence: FR)
  Receive Date: 20170420
  Receipt Date: 20170420
  Transmission Date: 20170830
  Serious: Yes (Life-Threatening)
  Sender: FDA-Public Use
  Company Number: FR-FRESENIUS KABI-FK201703245

PATIENT
  Age: 69 Year
  Sex: Female

DRUGS (1)
  1. OXALIPLATIN 5MG/ML CONCENTRATE FOR SOLUTION FOR INFUSION [Suspect]
     Active Substance: OXALIPLATIN
     Indication: PRODUCT USED FOR UNKNOWN INDICATION
     Route: 065

REACTIONS (5)
  - Immediate post-injection reaction [Recovered/Resolved]
  - Myalgia [Recovering/Resolving]
  - Pyrexia [Recovering/Resolving]
  - Tremor [Recovering/Resolving]
  - Chills [Recovering/Resolving]

NARRATIVE: CASE EVENT DATE: 20170331
